FAERS Safety Report 16717236 (Version 1)
Quarter: 2019Q3

REPORT INFORMATION
  Report Type: Spontaneous
  Country: FR (occurrence: FR)
  Receive Date: 20190819
  Receipt Date: 20190819
  Transmission Date: 20191005
  Serious: Yes (Hospitalization)
  Sender: FDA-Public Use
  Company Number: FR-JNJFOC-20190818320

PATIENT
  Age: 68 Year
  Sex: Male
  Weight: 102 kg

DRUGS (8)
  1. OMEPRAZOLE. [Concomitant]
     Active Substance: OMEPRAZOLE
     Dosage: 20 MG
  2. COTAREG [Concomitant]
     Active Substance: HYDROCHLOROTHIAZIDE\VALSARTAN
     Dosage: UNK
  3. TRANXENE [Concomitant]
     Active Substance: CLORAZEPATE DIPOTASSIUM
     Dosage: 5 MG
  4. XARELTO [Suspect]
     Active Substance: RIVAROXABAN
     Indication: VASCULAR DISORDER PROPHYLAXIS
     Dosage: DAILY DOSE 30 MG
     Route: 048
     Dates: start: 20190612, end: 20190628
  5. NOZINAN [Concomitant]
     Active Substance: LEVOMEPROMAZINE
     Dosage: UNK
  6. NATISPRAY [Concomitant]
     Active Substance: NITROGLYCERIN
     Dosage: UNK
  7. ISOPTINE [Concomitant]
     Active Substance: VERAPAMIL HYDROCHLORIDE
     Dosage: UNK
  8. ATORVASTATINE                      /01326101/ [Concomitant]
     Active Substance: ATORVASTATIN
     Dosage: UNK

REACTIONS (2)
  - Vascular purpura [Recovering/Resolving]
  - Rash maculo-papular [Recovering/Resolving]

NARRATIVE: CASE EVENT DATE: 20190628
